FAERS Safety Report 9691904 (Version 3)
Quarter: 2015Q4

REPORT INFORMATION
  Report Type: Report from Study
  Country: US (occurrence: US)
  Receive Date: 20131117
  Receipt Date: 20151015
  Transmission Date: 20160305
  Serious: Yes (Other)
  Sender: FDA-Public Use
  Company Number: US-ROCHE-1303718

PATIENT

DRUGS (1)
  1. VEMURAFENIB [Suspect]
     Active Substance: VEMURAFENIB
     Indication: PAPILLARY THYROID CANCER
     Route: 065

REACTIONS (32)
  - Dry mouth [Unknown]
  - Nail disorder [Unknown]
  - Squamous cell carcinoma [Unknown]
  - Diarrhoea [Unknown]
  - Asthenia [Unknown]
  - Atrial fibrillation [Unknown]
  - Photosensitivity reaction [Unknown]
  - Palmar-plantar erythrodysaesthesia syndrome [Unknown]
  - Dysgeusia [Unknown]
  - Dysphonia [Unknown]
  - Decreased appetite [Unknown]
  - Skin papilloma [Unknown]
  - Uveitis [Unknown]
  - Rash [Unknown]
  - Hyperkeratosis [Unknown]
  - Alopecia [Unknown]
  - Hypertension [Unknown]
  - Constipation [Unknown]
  - Headache [Unknown]
  - Melanocytic naevus [Unknown]
  - Weight decreased [Unknown]
  - Arthralgia [Unknown]
  - Pyrexia [Unknown]
  - Mucosal inflammation [Unknown]
  - Oral disorder [Unknown]
  - Product use issue [Unknown]
  - Fatigue [Unknown]
  - Lipase increased [Unknown]
  - Nausea [Unknown]
  - Vision blurred [Unknown]
  - Vomiting [Unknown]
  - Electrocardiogram QT prolonged [Unknown]
